FAERS Safety Report 11190261 (Version 1)
Quarter: 2015Q2

REPORT INFORMATION
  Report Type: Spontaneous
  Country: TR (occurrence: TR)
  Receive Date: 20150615
  Receipt Date: 20150615
  Transmission Date: 20150821
  Serious: Yes (Other)
  Sender: FDA-Public Use
  Company Number: TR-BAYER-2015-308013

PATIENT
  Age: 73 Year
  Sex: Male

DRUGS (18)
  1. ACETYLSALICYLIC ACID [Concomitant]
     Active Substance: ASPIRIN
     Dosage: 1 DF, QD
  2. PANTOPRAZOLE [Concomitant]
     Active Substance: PANTOPRAZOLE SODIUM
     Dosage: 1 DF, QD
  3. ENOXAPARIN SODIUM. [Concomitant]
     Active Substance: ENOXAPARIN SODIUM
     Dosage: 40 MG, QD
  4. IPRATROPIUM BROMIDE. [Concomitant]
     Active Substance: IPRATROPIUM BROMIDE
     Dosage: 3 DF, QD
  5. L-CARNITIN [Concomitant]
     Dosage: UNK, ONE TIME A WEEK
  6. GABAPENTIN. [Concomitant]
     Active Substance: GABAPENTIN
     Dosage: 1 DF, QD
  7. METHYLDOPA. [Concomitant]
     Active Substance: METHYLDOPA
     Dosage: 250 MG, QID
  8. CALCIUM ACETATE. [Concomitant]
     Active Substance: CALCIUM ACETATE
     Dosage: 3 DF, BID
  9. FOLIC ACID. [Concomitant]
     Active Substance: FOLIC ACID
     Dosage: 1 DF, QD
  10. ACETYLCYSTEINE. [Concomitant]
     Active Substance: ACETYLCYSTEINE
     Dosage: 1 DF, QD (600 EFFERVESCENT)
  11. EPREX [Concomitant]
     Active Substance: ERYTHROPOIETIN
     Dosage: 3000 U, 3 TIMES A WEEK
  12. DOXAZOSIN MESYLATE. [Concomitant]
     Active Substance: DOXAZOSIN MESYLATE
     Dosage: 1 DF, QD
  13. TELMISARTAN. [Concomitant]
     Active Substance: TELMISARTAN
     Dosage: 1 DF, QD
  14. MULTIVITAMINS [Concomitant]
     Active Substance: VITAMINS
     Dosage: ONE IN 15 DAYS
  15. NIFEDIPINE. [Suspect]
     Active Substance: NIFEDIPINE
     Indication: ESSENTIAL HYPERTENSION
     Dosage: 30 MG, BID
  16. SUCRALFATE. [Concomitant]
     Active Substance: SUCRALFATE
     Dosage: 3 DF, QD
  17. ASCORBIC ACID. [Concomitant]
     Active Substance: ASCORBIC ACID
     Dosage: ONE TIME A WEEK
  18. ENALAPRIL MALEATE. [Concomitant]
     Active Substance: ENALAPRIL MALEATE
     Dosage: 1 DF, QD

REACTIONS (9)
  - Bezoar [None]
  - Large intestinal obstruction [None]
  - Adenocarcinoma of colon [None]
  - Wound infection [None]
  - Pneumonia [None]
  - Abdominal distension [None]
  - Ascites [None]
  - Abdominal pain upper [None]
  - Vomiting [None]
